FAERS Safety Report 7691632-6 (Version None)
Quarter: 2011Q3

REPORT INFORMATION
  Report Type: 
  Country: None (occurrence: None)
  Receive Date: 20110818
  Receipt Date: 20110811
  Transmission Date: 20111222
  Serious: Yes (Hospitalization)
  Sender: FDA-Public Use
  Company Number: US-GENZYME-CAMP-1001766

PATIENT
  Sex: Female
  Weight: 61.224 kg

DRUGS (49)
  1. ATIVAN [Suspect]
     Indication: MENTAL STATUS CHANGES
     Dosage: 1 MG, PRN
     Route: 048
     Dates: start: 20110711, end: 20110716
  2. ZOLPIDEM TARTRATE [Suspect]
     Indication: INSOMNIA
     Dosage: 10 MG, PRN
     Route: 048
     Dates: start: 20090417
  3. PAROXETINE HCL [Concomitant]
     Indication: PRODUCT USED FOR UNKNOWN INDICATION
     Dosage: 30 MG, QD
     Route: 048
     Dates: start: 20110717, end: 20110718
  4. HEPARIN [Concomitant]
     Indication: PROPHYLAXIS
     Dosage: 5000 U, PRN
     Route: 058
     Dates: start: 20110716, end: 20110717
  5. ADDERALL 5 [Concomitant]
     Indication: ATTENTION DEFICIT/HYPERACTIVITY DISORDER
     Dosage: 5 MG, QD
     Route: 048
     Dates: start: 20110127, end: 20110716
  6. ONDANSETRON [Concomitant]
     Indication: PROPHYLAXIS OF NAUSEA AND VOMITING
     Dosage: 4 MG, QD
     Route: 042
     Dates: start: 20110716, end: 20110716
  7. ALEMTUZUMAB [Suspect]
     Indication: MULTIPLE SCLEROSIS
     Dosage: 12 MG, QD
     Route: 042
     Dates: start: 20090416, end: 20090417
  8. ADDERALL 5 [Concomitant]
     Indication: PRODUCT USED FOR UNKNOWN INDICATION
     Dosage: 5 MG, QD
     Dates: start: 20110719
  9. SACCHAROMYCES BOULARDII [Concomitant]
     Indication: CLOSTRIDIAL INFECTION
     Dosage: 250 MG, QD
     Route: 048
     Dates: start: 20110717, end: 20110718
  10. SODIUM CHLORIDE [Concomitant]
     Indication: DEHYDRATION
     Dosage: 100 ML, Q1HR
     Route: 042
     Dates: start: 20110716, end: 20110717
  11. NITROFURANTOIN [Concomitant]
     Indication: URINARY TRACT INFECTION
     Dosage: 100 MG, BID
     Route: 048
     Dates: start: 20110707, end: 20110716
  12. ENABLEX [Concomitant]
     Indication: POLLAKIURIA
     Dosage: 7.5 MG, QD
     Route: 048
     Dates: start: 20090301, end: 20110716
  13. ADDERALL 5 [Concomitant]
     Dosage: 5 MG, QD
     Route: 048
     Dates: start: 20110719
  14. ALEMTUZUMAB [Suspect]
     Dosage: 12 MG, QDX3
     Route: 042
     Dates: start: 20100412, end: 20100414
  15. OMEPRAZOLE [Concomitant]
     Dosage: 20 MG, QD
     Route: 048
     Dates: start: 20080801, end: 20110716
  16. OMEPRAZOLE [Concomitant]
     Dosage: 20 MG, QD
     Route: 048
     Dates: start: 20110719
  17. POTASSIUM CHLORIDE [Concomitant]
     Indication: HYPOKALAEMIA
     Dosage: 40 MG, TID
     Route: 048
     Dates: start: 20110717, end: 20110717
  18. BUTALBITAL [Concomitant]
     Indication: MIGRAINE
     Dosage: 50 MG, PRN
     Route: 048
     Dates: start: 20000101, end: 20110714
  19. TRAMADOL HCL [Concomitant]
     Indication: BACK PAIN
     Dosage: 50 MG, PRN
     Route: 048
     Dates: start: 20081201, end: 20110716
  20. METHYLPREDNISOLONE [Concomitant]
     Indication: MULTIPLE SCLEROSIS
     Dosage: 1.0 G, QD
     Route: 042
     Dates: start: 20090416, end: 20090417
  21. METRONIDAZOLE [Concomitant]
     Indication: CLOSTRIDIAL INFECTION
     Dosage: 500 MG, TID
     Route: 048
     Dates: start: 20110717, end: 20110728
  22. BUTALBITAL [Concomitant]
     Dosage: 50 MG, PRN
     Route: 048
     Dates: start: 20110719
  23. SOMA [Concomitant]
     Indication: BACK PAIN
     Dosage: 350 MG, BID
     Route: 048
     Dates: start: 20101001, end: 20110716
  24. METHYLPREDNISOLONE [Concomitant]
     Dosage: 1.0 G, QD
     Route: 042
     Dates: start: 20100412, end: 20110414
  25. ALEMTUZUMAB [Suspect]
     Dosage: 12 MG, QD
     Route: 042
     Dates: start: 20090420, end: 20090422
  26. ATIVAN [Suspect]
     Indication: HEART RATE
  27. FIORICET [Suspect]
     Indication: MENTAL STATUS CHANGES
     Dosage: 50 MG, PRN
     Route: 048
     Dates: start: 20110714, end: 20110716
  28. DONEPEZIL HCL [Concomitant]
     Indication: MEMORY IMPAIRMENT
     Dosage: 10 MG, QD
     Route: 048
     Dates: start: 20090101, end: 20110716
  29. TYLENOL PM [Suspect]
     Indication: MENTAL STATUS CHANGES
     Dosage: 4 TABS, Q4HR
     Route: 048
     Dates: start: 20110716, end: 20110716
  30. DONEPEZIL HCL [Concomitant]
     Dosage: 10 MG, QD
     Route: 048
     Dates: start: 20110719
  31. TRAMADOL HCL [Concomitant]
     Dosage: 50 MG, BID
     Route: 048
     Dates: start: 20110719, end: 20110726
  32. GUANFACINE HYDROCHLORIDE [Concomitant]
     Indication: ATTENTION DEFICIT/HYPERACTIVITY DISORDER
     Dosage: 1 MG, TID
     Route: 048
     Dates: start: 20090201, end: 20110716
  33. ZANAFLEX [Concomitant]
     Dosage: 2 MG, TID
     Route: 048
     Dates: start: 20110718, end: 20110720
  34. METHYLPREDNISOLONE [Concomitant]
     Dosage: 1.0 G, QD
     Route: 042
     Dates: start: 20090420, end: 20090420
  35. ATIVAN [Suspect]
     Indication: ANXIETY
     Dosage: 0.5 MG, PRN
     Route: 048
     Dates: start: 20110717, end: 20110717
  36. ATIVAN [Suspect]
     Indication: AGITATION
     Dosage: 1 MG, BID
     Route: 048
     Dates: start: 20110717
  37. FERROUS SULFATE TAB [Concomitant]
     Indication: ANAEMIA
     Dosage: 325 MG, QD
     Route: 048
     Dates: start: 20000101, end: 20110716
  38. FERROUS SULFATE TAB [Concomitant]
     Dosage: 325 MG, QD
     Route: 048
     Dates: start: 20110719
  39. ACETAMINOPHEN [Concomitant]
     Indication: PAIN
  40. ACETAMINOPHEN [Concomitant]
     Indication: BODY TEMPERATURE INCREASED
  41. SODIUM CHLORIDE [Concomitant]
     Indication: INFUSION
     Dosage: 500 ML, Q1HR
     Route: 042
     Dates: start: 20110717, end: 20110717
  42. ENABLEX [Concomitant]
     Dosage: 7.5 MG, QD
     Route: 048
     Dates: start: 20110719
  43. ZANAFLEX [Concomitant]
     Indication: BACK PAIN
     Dosage: 2 MG, TID
     Route: 048
     Dates: start: 20110226, end: 20110716
  44. VALIUM [Concomitant]
     Indication: ANXIETY
     Dosage: 5 MG, PRN
     Route: 048
     Dates: start: 20110725
  45. TYLENOL PM [Suspect]
     Indication: INSOMNIA
     Dosage: 2 TABS, PRN
     Route: 048
     Dates: start: 20060201, end: 20110715
  46. OMEPRAZOLE [Concomitant]
     Indication: GASTROOESOPHAGEAL REFLUX DISEASE
     Dosage: 40 MG, QD
     Route: 048
     Dates: start: 20110717, end: 20110718
  47. ACETAMINOPHEN [Concomitant]
     Indication: HEADACHE
     Dosage: 650 MG, PRN
     Route: 048
     Dates: start: 20110717, end: 20110717
  48. GUANFACINE HYDROCHLORIDE [Concomitant]
     Dosage: 1.5 MG, QD
     Route: 048
     Dates: start: 20110718, end: 20110729
  49. SOMA [Concomitant]
     Dosage: 350 MG, BID
     Route: 048
     Dates: start: 20110719

REACTIONS (17)
  - BLOOD THYROID STIMULATING HORMONE DECREASED [None]
  - CLOSTRIDIUM DIFFICILE COLITIS [None]
  - HYPOPHAGIA [None]
  - URINARY TRACT INFECTION [None]
  - ELECTROLYTE IMBALANCE [None]
  - HALLUCINATION [None]
  - CONFUSIONAL STATE [None]
  - SINUS TACHYCARDIA [None]
  - BLOOD POTASSIUM DECREASED [None]
  - INCORRECT DOSE ADMINISTERED [None]
  - RENAL FAILURE ACUTE [None]
  - MENTAL STATUS CHANGES [None]
  - DEHYDRATION [None]
  - DYSPEPSIA [None]
  - SUBSTANCE ABUSE [None]
  - DEPRESSED MOOD [None]
  - ABNORMAL BEHAVIOUR [None]
